FAERS Safety Report 10031286 (Version 2)
Quarter: 2014Q3

REPORT INFORMATION
  Report Type: Spontaneous
  Country: IT (occurrence: IT)
  Receive Date: 20140324
  Receipt Date: 20140709
  Transmission Date: 20150326
  Serious: Yes (Hospitalization)
  Sender: FDA-Public Use
  Company Number: IT-BRISTOL-MYERS SQUIBB COMPANY-20496170

PATIENT
  Age: 79 Year
  Sex: Female

DRUGS (4)
  1. QUINAPRIL [Concomitant]
     Active Substance: QUINAPRIL\QUINAPRIL HYDROCHLORIDE
     Dosage: TABS
  2. COUMADIN [Suspect]
     Active Substance: WARFARIN SODIUM
     Dosage: 1DF = 1 UNIT?INTERRUPTED ON 22-JAN-2014
     Route: 048
     Dates: start: 20130901
  3. DIURESIX [Concomitant]
     Active Substance: TORSEMIDE
     Dosage: TABS
  4. CONGESCOR [Concomitant]
     Active Substance: BISOPROLOL
     Dosage: TABS

REACTIONS (2)
  - Haematuria [Recovering/Resolving]
  - Pollakiuria [Recovering/Resolving]

NARRATIVE: CASE EVENT DATE: 20140121
